FAERS Safety Report 5928053-X (Version None)
Quarter: 2008Q4

REPORT INFORMATION
  Report Type: 
  Country: None (occurrence: None)
  Receive Date: 20081023
  Receipt Date: 20081022
  Transmission Date: 20090506
  Serious: Yes (Death, Hospitalization)
  Sender: FDA-Public Use
  Company Number: A0753058A

PATIENT
  Age: 61 Year
  Sex: Female

DRUGS (11)
  1. REQUIP XL [Suspect]
     Indication: RESTLESS LEGS SYNDROME
     Dosage: 2MG AT NIGHT
     Route: 048
     Dates: start: 20060201, end: 20081019
  2. DYAZIDE [Suspect]
     Dosage: 1TAB PER DAY
     Route: 048
     Dates: start: 20070730, end: 20081019
  3. ADVAIR DISKUS 100/50 [Suspect]
     Route: 055
  4. ACCOLATE [Concomitant]
  5. THEOPHYLLINE [Concomitant]
  6. PROCARDIA [Concomitant]
  7. GLIPIZIDE [Concomitant]
  8. LIPITOR [Concomitant]
  9. PROZAC [Concomitant]
  10. ASPIRIN [Concomitant]
  11. ZYRTEC [Concomitant]

REACTIONS (2)
  - DEATH [None]
  - DISEASE PROGRESSION [None]
